FAERS Safety Report 5339756-2 (Version None)
Quarter: 2007Q2

REPORT INFORMATION
  Report Type: 
  Country: None (occurrence: None)
  Receive Date: 20070531
  Receipt Date: 20070522
  Transmission Date: 20071010
  Serious: Yes (Other)
  Sender: FDA-Public Use
  Company Number: PHBS2007JP06492

PATIENT
  Age: 58 Year
  Sex: Female
  Weight: 44 kg

DRUGS (2)
  1. LAMISIL [Suspect]
     Indication: TINEA PEDIS
     Dosage: 125 MG/DAY
     Route: 048
     Dates: start: 20070305, end: 20070405
  2. RESTAMIN [Concomitant]
     Indication: NAIL TINEA
     Dosage: 1 G, UNK
     Route: 061
     Dates: start: 20070302

REACTIONS (8)
  - APHTHOUS STOMATITIS [None]
  - HERPES SIMPLEX SEROLOGY POSITIVE [None]
  - LIP SWELLING [None]
  - OEDEMA MOUTH [None]
  - ORAL INTAKE REDUCED [None]
  - ORAL PAIN [None]
  - PERIORBITAL OEDEMA [None]
  - STOMATITIS [None]
